FAERS Safety Report 7319573 (Version 2)
Quarter: 2015Q2

REPORT INFORMATION
  Report Type: Report from Study
  Country: ES (occurrence: ES)
  Receive Date: 20100315
  Receipt Date: 20150528
  Transmission Date: 20150821
  Serious: Yes (Other)
  Sender: FDA-Public Use
  Company Number: ES-ASTRAZENECA-2010SE10022

PATIENT
  Age: 67 Year
  Sex: Female

DRUGS (11)
  1. COAPROVEL [Suspect]
     Active Substance: HYDROCHLOROTHIAZIDE\IRBESARTAN
     Dosage: 150/12.5 MG 1 DF DAILY
     Route: 048
     Dates: start: 20070418
  2. SEROQUEL [Suspect]
     Active Substance: QUETIAPINE FUMARATE
     Indication: DEPRESSION
     Route: 048
     Dates: start: 20081202, end: 20091110
  3. TRIALMIN [Suspect]
     Active Substance: GEMFIBROZIL
     Route: 048
     Dates: start: 20090622
  4. BONESIL D FLAS [Concomitant]
     Dosage: 1500 MG/400 IU 1 DF DAILY
     Route: 048
     Dates: start: 20080604
  5. ADARTREL [Concomitant]
     Active Substance: ROPINIROLE
     Route: 048
     Dates: start: 20080121
  6. CIPRALEX [Suspect]
     Active Substance: ESCITALOPRAM OXALATE
     Route: 048
     Dates: start: 20080227
  7. PANTOPRAZOLE ALTER [Suspect]
     Active Substance: PANTOPRAZOLE SODIUM
     Route: 048
     Dates: start: 20080402
  8. ALEANDRONIC ACID [Concomitant]
     Route: 048
     Dates: start: 20080520
  9. SIMVASTATINE ASOL [Concomitant]
     Route: 048
     Dates: start: 20080911
  10. TORASEMIDA STADA [Concomitant]
     Route: 048
     Dates: start: 20080402
  11. ZOLPIDEM ACOSL [Concomitant]
     Route: 048
     Dates: start: 20081226

REACTIONS (2)
  - Blindness [Unknown]
  - Glaucoma [Unknown]

NARRATIVE: CASE EVENT DATE: 20090715
